FAERS Safety Report 7088758-7 (Version None)
Quarter: 2010Q4

REPORT INFORMATION
  Report Type: 
  Country: None (occurrence: None)
  Receive Date: 20101108
  Receipt Date: 20101027
  Transmission Date: 20110411
  Serious: Yes (Congenital Anomaly)
  Sender: FDA-Public Use
  Company Number: US-US-EMD SERONO, INC.-236462K09USA

PATIENT

DRUGS (8)
  1. REBIF [Suspect]
     Route: 064
     Dates: end: 20081201
  2. TEGRETOL [Concomitant]
     Route: 065
     Dates: end: 20081201
  3. LYRICA [Concomitant]
     Route: 065
     Dates: end: 20081201
  4. METFORMIN [Concomitant]
     Dates: end: 20081201
  5. KEPPRA [Concomitant]
     Dates: end: 20081201
  6. OMEPRAZOLE [Concomitant]
     Dates: end: 20081201
  7. TEMAZEPAM [Concomitant]
     Dates: end: 20081201
  8. AMANTADINE [Concomitant]
     Dates: end: 20081201

REACTIONS (1)
  - TURNER'S SYNDROME [None]
